FAERS Safety Report 6595146-6 (Version None)
Quarter: 2010Q1

REPORT INFORMATION
  Report Type: 
  Country: None (occurrence: None)
  Receive Date: 20100222
  Receipt Date: 20100216
  Transmission Date: 20100710
  Serious: Yes (Death)
  Sender: FDA-Public Use
  Company Number: US-GILEAD-2010-0027114

PATIENT
  Sex: Male

DRUGS (13)
  1. LETAIRIS [Suspect]
     Indication: PULMONARY ARTERIAL HYPERTENSION
     Route: 048
     Dates: start: 20090926, end: 20100202
  2. REVATIO [Concomitant]
  3. TRIAMTERENE AND HYDROCHLOROTHIAZIDE [Concomitant]
  4. METOPROLOL TARTRATE [Concomitant]
  5. PLAVIX [Concomitant]
  6. BAYER ASA [Concomitant]
  7. PROTONIX [Concomitant]
  8. VYTORIN [Concomitant]
  9. XYZAL [Concomitant]
  10. METFORMIN [Concomitant]
  11. FISH OIL [Concomitant]
  12. ACETYL L-CAR [Concomitant]
  13. XOLAIR [Concomitant]

REACTIONS (2)
  - HYPOXIA [None]
  - PULMONARY ARTERIAL HYPERTENSION [None]
